FAERS Safety Report 12899004 (Version 3)
Quarter: 2025Q4

REPORT INFORMATION
  Report Type: Spontaneous
  Country: EU (occurrence: EU)
  Receive Date: 20161101
  Receipt Date: 20251231
  Transmission Date: 20260117
  Serious: Yes (Life-Threatening, Hospitalization, Other)
  Sender: BAXTER
  Company Number: EU-BAXTER-2016BAX054411

PATIENT
  Age: 68 Year
  Sex: Female
  Weight: 59 kg

DRUGS (12)
  1. CYCLOPHOSPHAMIDE [Suspect]
     Active Substance: CYCLOPHOSPHAMIDE
     Indication: Breast cancer
     Dosage: 1DF, 3 COURSES WITH 3 WEEKS BETWEEN THEM; INTRAVENOUS INFUSION; FEC THERAPY
     Route: 042
     Dates: start: 20130403
  2. FLUOROURACIL [Suspect]
     Active Substance: FLUOROURACIL
     Indication: Breast cancer
     Dosage: 1DF, 3 COURSES WITH 3 WEEKS BETWEEN THEM; INFUSION; FEC THERAPY
     Route: 042
     Dates: start: 20130403
  3. EPIRUBICIN [Suspect]
     Active Substance: EPIRUBICIN
     Indication: Breast cancer
     Dosage: 1 DF, 3 COURSES WITH 3 WEEKS BETWEEN THEM; INFUSION; FEC THERAPY
     Route: 042
     Dates: start: 20130403
  4. TAXOTERE [Suspect]
     Active Substance: DOCETAXEL
     Indication: Breast cancer
     Dosage: CONC V INFVLST 40MG/ML FL0,5ML+SOLV 1,5ML; 2 COURSES
     Route: 042
     Dates: start: 201304
  5. DIETARY SUPPLEMENT [Concomitant]
     Active Substance: DIETARY SUPPLEMENT
     Indication: Product used for unknown indication
     Dosage: VARIOUS DOSAGE
     Route: 048
     Dates: start: 201212
  6. DIETARY SUPPLEMENT [Concomitant]
     Active Substance: DIETARY SUPPLEMENT
     Dosage: VARIOUS DOSAGE
     Route: 048
     Dates: start: 201212
  7. SELENIUM [Concomitant]
     Active Substance: SELENIUM
     Indication: Product used for unknown indication
     Dosage: VARIOUS DOSAGE
     Route: 048
     Dates: start: 201212
  8. SELENIUM [Concomitant]
     Active Substance: SELENIUM
     Dosage: VARIOUS DOSAGE
     Route: 048
     Dates: start: 201212
  9. VITAMIN B [Concomitant]
     Active Substance: VITAMIN B
     Indication: Product used for unknown indication
     Dosage: VARIOUS DOSAGE
     Route: 048
     Dates: start: 201212
  10. DIETARY SUPPLEMENT\UBIDECARENONE [Concomitant]
     Active Substance: DIETARY SUPPLEMENT\UBIDECARENONE
     Indication: Product used for unknown indication
     Dosage: VARIOUS DOSAGE
     Route: 048
     Dates: start: 201212
  11. DIETARY SUPPLEMENT\UBIDECARENONE [Concomitant]
     Active Substance: DIETARY SUPPLEMENT\UBIDECARENONE
     Dosage: VARIOUS DOSAGE
     Route: 048
     Dates: start: 201212
  12. MAGNESIUM CHLORIDE [Concomitant]
     Active Substance: MAGNESIUM CHLORIDE
     Indication: Product used for unknown indication
     Dosage: VARIOUS DOSAGE
     Route: 048
     Dates: start: 201212

REACTIONS (2)
  - Sense of oppression [Unknown]
  - Cardiac failure [Not Recovered/Not Resolved]

NARRATIVE: CASE EVENT DATE: 20160609
